FAERS Safety Report 4342556-3 (Version None)
Quarter: 2004Q2

REPORT INFORMATION
  Report Type: 
  Country: None (occurrence: None)
  Receive Date: 20040416
  Receipt Date: 20040405
  Transmission Date: 20050107
  Serious: Yes (Hospitalization, Other)
  Sender: FDA-Public Use
  Company Number: 2004010454

PATIENT
  Age: 73 Year
  Sex: Female

DRUGS (12)
  1. NEURONTIN [Suspect]
     Indication: ILL-DEFINED DISORDER
     Dosage: 600 MG (DAILY), ORAL
     Route: 048
     Dates: end: 20031205
  2. FUROSEMDIE (FUROSEMIDE) [Suspect]
     Indication: ESSENTIAL HYPERTENSION
     Dosage: 20 MG (DAILY), ORAL
     Route: 048
     Dates: end: 20031203
  3. IRBESARTAN (IRBASARTAN) [Suspect]
     Indication: ESSENTIAL HYPERTENSION
     Dosage: 300 MG (DAILY), ORAL
     Route: 048
     Dates: end: 20031201
  4. TRAMADOL HCL [Suspect]
     Indication: ILL-DEFINED DISORDER
     Dosage: 300 MG (DAILY), ORAL
     Route: 048
     Dates: end: 20031201
  5. VENLAFAXINE HCL [Suspect]
     Indication: DYSTHYMIC DISORDER
     Dosage: 75 MG, ORAL
     Route: 048
     Dates: end: 20031201
  6. ACARBOSE (ACARBOSE) [Suspect]
     Indication: DIABETES MELLITUS
     Dosage: 300 MG , ORAL
     Route: 048
     Dates: end: 20031203
  7. AMLODIPINE BESYLATE [Concomitant]
  8. LANXOPRAZOLE (LANSOPRAZOLE) [Concomitant]
  9. DIFRAREL (BETACAROTENE, MYRTILLUS) [Concomitant]
  10. ACETAMINOPHEN [Concomitant]
  11. TRIMETAZIDINE HYDROCHLORIDE (TRIMETAZIDINE HYDROCHLORIDE) [Concomitant]
  12. BETACAROTENE (BETACAROTENE) [Concomitant]

REACTIONS (8)
  - BRAIN SCAN ABNORMAL [None]
  - CEREBRAL ATROPHY [None]
  - ELECTROENCEPHALOGRAM ABNORMAL [None]
  - FALL [None]
  - HEADACHE [None]
  - METABOLIC DISORDER [None]
  - TOXIC SKIN ERUPTION [None]
  - VERTIGO [None]
